FAERS Safety Report 16426558 (Version 2)
Quarter: 2019Q2

REPORT INFORMATION
  Report Type: Spontaneous
  Country: CH (occurrence: CH)
  Receive Date: 20190613
  Receipt Date: 20190621
  Transmission Date: 20190711
  Serious: Yes (Disabling, Other)
  Sender: FDA-Public Use
  Company Number: CH-JNJFOC-20190615357

PATIENT
  Age: 3 Decade
  Sex: Male

DRUGS (15)
  1. HALDOL DECANOAS [Suspect]
     Active Substance: HALOPERIDOL DECANOATE
     Route: 030
     Dates: start: 201811
  2. HALDOL [Suspect]
     Active Substance: HALOPERIDOL
     Route: 048
     Dates: start: 201811
  3. ORFIRIL [Suspect]
     Active Substance: VALPROATE SODIUM
     Indication: PRODUCT USED FOR UNKNOWN INDICATION
     Route: 048
     Dates: end: 2017
  4. HALDOL [Suspect]
     Active Substance: HALOPERIDOL
     Route: 048
     Dates: start: 20190527
  5. HALDOL [Suspect]
     Active Substance: HALOPERIDOL
     Route: 048
     Dates: start: 20180525, end: 201811
  6. HALDOL [Suspect]
     Active Substance: HALOPERIDOL
     Route: 048
     Dates: end: 20190527
  7. HALDOL [Suspect]
     Active Substance: HALOPERIDOL
     Indication: PRODUCT USED FOR UNKNOWN INDICATION
     Dosage: SPRING OF 2017
     Route: 048
     Dates: start: 2017, end: 20180525
  8. HALDOL DECANOAS [Suspect]
     Active Substance: HALOPERIDOL DECANOATE
     Route: 030
     Dates: start: 20170923, end: 20170923
  9. HALDOL DECANOAS [Suspect]
     Active Substance: HALOPERIDOL DECANOATE
     Route: 030
     Dates: start: 20190527
  10. HALDOL DECANOAS [Suspect]
     Active Substance: HALOPERIDOL DECANOATE
     Indication: PRODUCT USED FOR UNKNOWN INDICATION
     Route: 030
     Dates: start: 20170824, end: 20170824
  11. HALDOL DECANOAS [Suspect]
     Active Substance: HALOPERIDOL DECANOATE
     Route: 030
     Dates: start: 20171024, end: 20171024
  12. ORFIRIL [Suspect]
     Active Substance: VALPROATE SODIUM
     Route: 048
     Dates: start: 2017
  13. DALMADORM [Concomitant]
     Active Substance: FLURAZEPAM HYDROCHLORIDE
     Indication: PRODUCT USED FOR UNKNOWN INDICATION
     Route: 065
  14. HALDOL DECANOAS [Suspect]
     Active Substance: HALOPERIDOL DECANOATE
     Dosage: TIME INTERVAL:1.33 MO
     Route: 030
     Dates: start: 201710, end: 201811
  15. TRANXILIUM [Concomitant]
     Active Substance: CLORAZEPATE DIPOTASSIUM
     Indication: PRODUCT USED FOR UNKNOWN INDICATION
     Route: 065

REACTIONS (2)
  - Dysphagia [Not Recovered/Not Resolved]
  - Cerebral atrophy [Not Recovered/Not Resolved]

NARRATIVE: CASE EVENT DATE: 2017
